FAERS Safety Report 26121385 (Version 1)
Quarter: 2025Q4

REPORT INFORMATION
  Report Type: Spontaneous
  Country: US (occurrence: None)
  Receive Date: 20251203
  Receipt Date: 20251203
  Transmission Date: 20260117
  Serious: No
  Sender: FDA-CTU
  Company Number: None

PATIENT

DRUGS (1)
  1. ELIQUIS [Suspect]
     Active Substance: APIXABAN

REACTIONS (5)
  - Attention deficit hyperactivity disorder [None]
  - Stress [None]
  - Confusional state [None]
  - Cardiac failure [None]
  - Nonspecific reaction [None]

NARRATIVE: CASE EVENT DATE: 20251203
